FAERS Safety Report 4571256-X (Version None)
Quarter: 2005Q1

REPORT INFORMATION
  Report Type: 
  Country: None (occurrence: None)
  Receive Date: 20050202
  Receipt Date: 20050120
  Transmission Date: 20050727
  Serious: Yes (Death)
  Sender: FDA-Public Use
  Company Number: VISP-PR-0501S-0022

PATIENT

DRUGS (1)
  1. VISIPAQUE [Suspect]
     Indication: PULMONARY EMBOLISM
     Dosage: 150 ML SINGLE DOSE IV
     Route: 042
     Dates: start: 20041001, end: 20041001

REACTIONS (6)
  - CARDIAC ARREST [None]
  - COMA [None]
  - DYSPNOEA [None]
  - LOBAR PNEUMONIA [None]
  - RESPIRATORY DISTRESS [None]
  - RESUSCITATION [None]
